FAERS Safety Report 25619721 (Version 1)
Quarter: 2025Q3

REPORT INFORMATION
  Report Type: Spontaneous
  Country: US (occurrence: US)
  Receive Date: 20250729
  Receipt Date: 20250729
  Transmission Date: 20251021
  Serious: Yes (Other)
  Sender: AMGEN
  Company Number: US-AMGEN-USASP2025144375

PATIENT

DRUGS (1)
  1. FILGRASTIM [Suspect]
     Active Substance: FILGRASTIM
     Indication: Haematopoietic stem cell mobilisation
     Route: 065

REACTIONS (4)
  - Large granular lymphocytosis [Unknown]
  - Second primary malignancy [Unknown]
  - Cytokine release syndrome [Unknown]
  - Neurotoxicity [Unknown]
